FAERS Safety Report 22080853 (Version 3)
Quarter: 2023Q2

REPORT INFORMATION
  Report Type: Spontaneous
  Country: US (occurrence: US)
  Receive Date: 20230309
  Receipt Date: 20230511
  Transmission Date: 20230722
  Serious: No
  Sender: FDA-Public Use
  Company Number: US-BRISTOL-MYERS SQUIBB COMPANY-2023-033981

PATIENT
  Age: 79 Year
  Sex: Male

DRUGS (1)
  1. LENALIDOMIDE [Suspect]
     Active Substance: LENALIDOMIDE
     Indication: Plasma cell myeloma
     Dosage: FREQ: TAKE 1 CAPSULE (10 MG TOTAL) BY MOUTH EVERY DAY FOR 21 DAYS, 7 DAYS OFF. TAKE WHOLE WITH WATER
     Route: 048
     Dates: start: 20221021

REACTIONS (3)
  - Illness [Recovered/Resolved]
  - Product dose omission in error [Unknown]
  - Product distribution issue [Unknown]
